FAERS Safety Report 7080273-X (Version None)
Quarter: 2010Q4

REPORT INFORMATION
  Report Type: 
  Country: None (occurrence: None)
  Receive Date: 20101103
  Receipt Date: 20101029
  Transmission Date: 20110411
  Serious: No
  Sender: FDA-Public Use
  Company Number: US-BIOGENIDEC-2010BI037624

PATIENT
  Sex: Female

DRUGS (5)
  1. AVONEX [Suspect]
     Indication: MULTIPLE SCLEROSIS
     Route: 030
     Dates: start: 19980101
  2. AVONEX [Suspect]
     Route: 030
     Dates: start: 19980101
  3. AVONEX [Suspect]
     Route: 030
  4. AVONEX [Suspect]
     Route: 030
  5. BACLOFEN [Concomitant]
     Indication: MUSCLE SPASTICITY

REACTIONS (4)
  - FATIGUE [None]
  - MUSCLE SPASMS [None]
  - NARCOLEPSY [None]
  - URINARY TRACT INFECTION [None]
